FAERS Safety Report 16334052 (Version 1)
Quarter: 2019Q2

REPORT INFORMATION
  Report Type: Spontaneous
  Country: GB (occurrence: GB)
  Receive Date: 20190520
  Receipt Date: 20190520
  Transmission Date: 20190711
  Serious: Yes (Other)
  Sender: FDA-Public Use
  Company Number: GB-TEVA-2019-GB-1051627

PATIENT
  Age: 32 Year
  Sex: Female

DRUGS (5)
  1. FLUOXETINE HYDROCHLORIDE. [Concomitant]
     Active Substance: FLUOXETINE HYDROCHLORIDE
  2. ACETYLSALICYLIC ACID [Concomitant]
     Active Substance: ASPIRIN
  3. IBUPROFEN. [Concomitant]
     Active Substance: IBUPROFEN
  4. CLARITHROMYCIN. [Suspect]
     Active Substance: CLARITHROMYCIN
     Indication: TONSILLITIS
     Route: 048
     Dates: start: 20190412, end: 20190413
  5. PARACETAMOL [Concomitant]
     Active Substance: ACETAMINOPHEN

REACTIONS (5)
  - Abdominal pain [Recovered/Resolved with Sequelae]
  - Nausea [Recovered/Resolved]
  - Diarrhoea [Recovered/Resolved with Sequelae]
  - Faeces pale [Recovered/Resolved with Sequelae]
  - Back pain [Recovering/Resolving]

NARRATIVE: CASE EVENT DATE: 20190412
